FAERS Safety Report 21687643 (Version 2)
Quarter: 2023Q2

REPORT INFORMATION
  Report Type: Spontaneous
  Country: US (occurrence: US)
  Receive Date: 20221206
  Receipt Date: 20230417
  Transmission Date: 20230721
  Serious: Yes (Hospitalization, Other)
  Sender: FDA-Public Use
  Company Number: US-GILEAD-2022-0607434

PATIENT
  Age: 61 Year
  Sex: Female

DRUGS (2)
  1. TRODELVY [Suspect]
     Active Substance: SACITUZUMAB GOVITECAN-HZIY
     Indication: Breast cancer
     Dosage: 780 MG, DAYS 1, 8 EVERY 21 DAYS
     Route: 042
     Dates: start: 20220928
  2. VEKLURY [Suspect]
     Active Substance: REMDESIVIR
     Indication: COVID-19
     Dosage: UNK
     Route: 065

REACTIONS (6)
  - Thrombosis [Not Recovered/Not Resolved]
  - Clostridium difficile infection [Unknown]
  - Pain in extremity [Not Recovered/Not Resolved]
  - Blood glucose increased [Unknown]
  - Diarrhoea [Unknown]
  - Constipation [Unknown]

NARRATIVE: CASE EVENT DATE: 20221101
